FAERS Safety Report 8148515-7 (Version None)
Quarter: 2012Q1

REPORT INFORMATION
  Report Type: 
  Country: None (occurrence: None)
  Receive Date: 20120218
  Receipt Date: 20110613
  Transmission Date: 20120608
  Serious: No
  Sender: FDA-Public Use
  Company Number: US-ALLERGAN-1107981US

PATIENT
  Sex: Female

DRUGS (1)
  1. BOTULINUM TOXIN TYPE A [Suspect]
     Indication: MIGRAINE
     Dosage: UNK
     Dates: start: 20110329, end: 20110329

REACTIONS (6)
  - EYELID PTOSIS [None]
  - FATIGUE [None]
  - DYSPHONIA [None]
  - ASTHENIA [None]
  - MIGRAINE [None]
  - FACIAL PARESIS [None]
